FAERS Safety Report 13256147 (Version 1)
Quarter: 2017Q1

REPORT INFORMATION
  Report Type: Spontaneous
  Country: US (occurrence: US)
  Receive Date: 20170221
  Receipt Date: 20170221
  Transmission Date: 20170428
  Serious: No
  Sender: FDA-Public Use
  Company Number: None

PATIENT
  Age: 73 Year
  Sex: Female

DRUGS (1)
  1. LISINOPRIL 40 MG [Suspect]
     Active Substance: LISINOPRIL

REACTIONS (2)
  - Hyperkalaemia [None]
  - Acute myocardial infarction [None]

NARRATIVE: CASE EVENT DATE: 20150202
